FAERS Safety Report 11022665 (Version 1)
Quarter: 2015Q2

REPORT INFORMATION
  Report Type: Spontaneous
  Country: US (occurrence: US)
  Receive Date: 20150413
  Receipt Date: 20150413
  Transmission Date: 20150821
  Serious: No
  Sender: FDA-Public Use
  Company Number: US-ASTRAZENECA-2015SE30841

PATIENT
  Sex: Male

DRUGS (6)
  1. OMEPRAZOLE. [Suspect]
     Active Substance: OMEPRAZOLE
     Route: 048
  2. LIPITOR [Concomitant]
     Active Substance: ATORVASTATIN CALCIUM
  3. WHITE WILLOW BARK (ASPIRIN) [Concomitant]
  4. BOSWELLIA [Concomitant]
  5. OLIVE LEAF [Concomitant]
  6. BROMELAIN [Concomitant]
     Active Substance: BROMELAINS

REACTIONS (2)
  - Pain [Unknown]
  - Swelling [Unknown]
